FAERS Safety Report 21721446 (Version 1)
Quarter: 2022Q4

REPORT INFORMATION
  Report Type: Spontaneous
  Country: CA (occurrence: None)
  Receive Date: 20221213
  Receipt Date: 20221213
  Transmission Date: 20230113
  Serious: Yes (Other)
  Sender: FDA-Public Use
  Company Number: CA-PFIZER INC-202201359027

PATIENT
  Age: 47 Year
  Sex: Male

DRUGS (13)
  1. METHOTREXATE [Suspect]
     Active Substance: METHOTREXATE
     Indication: Product used for unknown indication
     Route: 065
     Dates: start: 201802
  2. METHOTREXATE [Suspect]
     Active Substance: METHOTREXATE
     Dosage: 2.5 MG ORAL TABLET [8 TABLET(S) ONCE A WEEK X 3 MTH30, DOSE INCRAESED
     Route: 048
     Dates: start: 201802
  3. INFLECTRA [Concomitant]
     Active Substance: INFLIXIMAB-DYYB
     Dosage: CYCLIC
     Route: 065
  4. CELEBREX [Concomitant]
     Active Substance: CELECOXIB
     Route: 065
     Dates: start: 201805
  5. BETAMETHASONE\CALCIPOTRIENE [Concomitant]
     Active Substance: BETAMETHASONE\CALCIPOTRIENE
     Dosage: DOSE: 50 MCG-0.5 MG/G
     Route: 061
  6. FOLIC ACID [Concomitant]
     Active Substance: FOLIC ACID
     Dosage: (1 TABLET(S) ONCE A WEEKX3 MTH30] [TAKE THE DAY AFTER MT)
     Route: 065
  7. LEFLUNOMIDE [Concomitant]
     Active Substance: LEFLUNOMIDE
     Route: 065
     Dates: start: 201805
  8. METFORMIN [Concomitant]
     Active Substance: METFORMIN HYDROCHLORIDE
     Indication: Diabetes mellitus
     Route: 065
     Dates: start: 2021
  9. ARTHROTEC [Concomitant]
     Active Substance: DICLOFENAC SODIUM\MISOPROSTOL
     Route: 065
  10. ARAVA [Concomitant]
     Active Substance: LEFLUNOMIDE
     Route: 065
  11. CALCIUM [Concomitant]
     Active Substance: CALCIUM
     Route: 065
  12. VITAMIN D [Concomitant]
     Active Substance: VITAMIN D NOS
     Route: 065
  13. CORTISONE [Concomitant]
     Active Substance: CORTISONE
     Route: 065

REACTIONS (8)
  - Platelet count decreased [Unknown]
  - Hepatic enzyme increased [Unknown]
  - Arthritis [Unknown]
  - Tendonitis [Recovering/Resolving]
  - Bursitis [Recovering/Resolving]
  - Arthralgia [Unknown]
  - Psoriasis [Not Recovered/Not Resolved]
  - Lymphocyte count increased [Unknown]

NARRATIVE: CASE EVENT DATE: 20220501
